FAERS Safety Report 7009743-7 (Version None)
Quarter: 2010Q3

REPORT INFORMATION
  Report Type: 
  Country: None (occurrence: None)
  Receive Date: 20100903
  Receipt Date: 20090623
  Transmission Date: 20110219
  Serious: No
  Sender: FDA-Public Use
  Company Number: 2009-00172

PATIENT
  Age: 25 Year
  Sex: Female
  Weight: 83.9154 kg

DRUGS (3)
  1. ZICAM NASAL PRODUCTS [Suspect]
     Dosage: QD
     Dates: start: 20090315, end: 20090315
  2. LISINOPRIL [Concomitant]
  3. ULTRAM [Concomitant]

REACTIONS (1)
  - ANOSMIA [None]
